FAERS Safety Report 9437164 (Version 2)
Quarter: 2013Q3

REPORT INFORMATION
  Report Type: Spontaneous
  Country: US (occurrence: US)
  Receive Date: 20130802
  Receipt Date: 20130816
  Transmission Date: 20140515
  Serious: No
  Sender: FDA-Public Use
  Company Number: US-009507513-1308USA000379

PATIENT
  Sex: Female

DRUGS (3)
  1. MIRALAX [Suspect]
     Indication: CONSTIPATION
     Dosage: 2 TSP, QD
     Route: 048
     Dates: start: 201211
  2. MIRALAX [Suspect]
     Indication: FAECES HARD
  3. MIRALAX [Suspect]
     Indication: MEDICAL OBSERVATION

REACTIONS (4)
  - Incorrect drug administration duration [Unknown]
  - Drug effect decreased [Unknown]
  - Off label use [Unknown]
  - Drug administered to patient of inappropriate age [Unknown]
